FAERS Safety Report 5029071-9 (Version None)
Quarter: 2006Q2

REPORT INFORMATION
  Report Type: 
  Country: None (occurrence: None)
  Receive Date: 20060613
  Receipt Date: 20060531
  Transmission Date: 20061013
  Serious: Yes (Hospitalization)
  Sender: FDA-Public Use
  Company Number: APP200600156

PATIENT
  Age: 30 Year
  Sex: Female

DRUGS (2)
  1. CHORIONIC GONADOTROPIN [Suspect]
     Indication: INFERTILITY
     Dosage: 5000 IU, ONCE, INJECTION
  2. MENOTROPINS [Suspect]
     Indication: INFERTILITY
     Dosage: ONCE, INJECTION

REACTIONS (9)
  - ABDOMINAL DISTENSION [None]
  - DRUG EXPOSURE DURING PREGNANCY [None]
  - INFLAMMATION [None]
  - OVARIAN ENLARGEMENT [None]
  - OVARIAN HYPERSTIMULATION SYNDROME [None]
  - OVARIAN TORSION [None]
  - PREGNANCY [None]
  - TENDERNESS [None]
  - WHITE BLOOD CELL COUNT INCREASED [None]
